FAERS Safety Report 4430997-5 (Version None)
Quarter: 2004Q3

REPORT INFORMATION
  Report Type: 
  Country: None (occurrence: None)
  Receive Date: 20040824
  Receipt Date: 20040812
  Transmission Date: 20050211
  Serious: Yes (Other)
  Sender: FDA-Public Use
  Company Number: IL-JNJFOC-20040807137

PATIENT
  Age: 61 Year
  Sex: Female

DRUGS (5)
  1. INFLIXIMAB [Suspect]
     Dosage: DAY 45
     Route: 042
  2. INFLIXIMAB [Suspect]
     Dosage: DAY 14
     Route: 042
  3. INFLIXIMAB [Suspect]
     Indication: RHEUMATOID ARTHRITIS
     Dosage: DAY 1
     Route: 042
  4. PREDNISONE [Concomitant]
  5. METHOTREXATE [Concomitant]

REACTIONS (1)
  - LUPUS-LIKE SYNDROME [None]
